FAERS Safety Report 9850325 (Version 1)
Quarter: 2014Q1

REPORT INFORMATION
  Report Type: Spontaneous
  Country: US (occurrence: None)
  Receive Date: 20140127
  Receipt Date: 20140127
  Transmission Date: 20141002
  Serious: Yes (Other)
  Sender: FDA-Public Use
  Company Number: None

PATIENT
  Age: 14 Year
  Sex: Male
  Weight: 37.2 kg

DRUGS (2)
  1. LEVALBUTEROL [Suspect]
     Indication: ASTHMA
  2. LEVALBUTEROL [Suspect]
     Indication: DYSPNOEA

REACTIONS (2)
  - Stomatitis [None]
  - Palpitations [None]
